FAERS Safety Report 20085787 (Version 1)
Quarter: 2021Q4

REPORT INFORMATION
  Report Type: Spontaneous
  Country: US (occurrence: US)
  Receive Date: 20211118
  Receipt Date: 20211118
  Transmission Date: 20220304
  Serious: Yes (Other)
  Sender: FDA-Public Use
  Company Number: US-BAYER-2021A249070

PATIENT
  Age: 56 Year
  Sex: Male

DRUGS (1)
  1. CALCIUM CARBONATE [Suspect]
     Active Substance: CALCIUM CARBONATE

REACTIONS (1)
  - Calciphylaxis [None]
